FAERS Safety Report 6024085-4 (Version None)
Quarter: 2008Q4

REPORT INFORMATION
  Report Type: 
  Country: None (occurrence: None)
  Receive Date: 20081224
  Receipt Date: 20081211
  Transmission Date: 20090506
  Serious: Yes (Death, Other)
  Sender: FDA-Public Use
  Company Number: 200812IM000343

PATIENT
  Age: 9 Year
  Sex: Female

DRUGS (8)
  1. ACTIMMUNE [Suspect]
     Indication: MYCOBACTERIUM AVIUM COMPLEX INFECTION
     Dosage: 50 UG/M2, SUBCUTANEOUS, 200 UG/M2, SUBCUTANEOUS
     Route: 058
  2. CLARITHROMYCIN [Suspect]
  3. AMIKACIN [Suspect]
  4. RIFABUTIN [Suspect]
  5. CLOFAZIMINE [Suspect]
  6. RIFAMPICIN [Concomitant]
  7. ETHAMBUTOL [Concomitant]
  8. AZITHROMYCIN [Concomitant]

REACTIONS (15)
  - CARDIAC FAILURE ACUTE [None]
  - CD4 LYMPHOCYTES DECREASED [None]
  - CONDITION AGGRAVATED [None]
  - COXSACKIE MYOCARDITIS [None]
  - DEAFNESS [None]
  - DIARRHOEA [None]
  - GASTROINTESTINAL INFLAMMATION [None]
  - GENERAL PHYSICAL HEALTH DETERIORATION [None]
  - LYMPHADENOPATHY [None]
  - MALNUTRITION [None]
  - PULMONARY OEDEMA [None]
  - THERAPEUTIC RESPONSE DECREASED [None]
  - UNRESPONSIVE TO STIMULI [None]
  - WEIGHT DECREASED [None]
  - WEIGHT INCREASED [None]
